FAERS Safety Report 6163023-0 (Version None)
Quarter: 2009Q2

REPORT INFORMATION
  Report Type: 
  Country: None (occurrence: None)
  Receive Date: 20090421
  Receipt Date: 20090416
  Transmission Date: 20091009
  Serious: Yes (Other)
  Sender: FDA-Public Use
  Company Number: GB-JNJCH-2009006838

PATIENT
  Sex: Male

DRUGS (1)
  1. NICORETTE INVISI 25MG [Suspect]
     Indication: SMOKING CESSATION THERAPY
     Dosage: TEXT:1 PATCH DAILY
     Route: 062
     Dates: start: 20090130, end: 20090305

REACTIONS (7)
  - APPLICATION SITE EROSION [None]
  - APPLICATION SITE ERYTHEMA [None]
  - APPLICATION SITE INFLAMMATION [None]
  - APPLICATION SITE IRRITATION [None]
  - APPLICATION SITE PRURITUS [None]
  - APPLICATION SITE REACTION [None]
  - APPLICATION SITE SWELLING [None]
